FAERS Safety Report 24718859 (Version 1)
Quarter: 2024Q4

REPORT INFORMATION
  Report Type: Spontaneous
  Country: US (occurrence: US)
  Receive Date: 20241210
  Receipt Date: 20241210
  Transmission Date: 20250114
  Serious: Yes (Other)
  Sender: BRISTOL-MYERS SQUIBB COMPANY
  Company Number: US-BRISTOL-MYERS SQUIBB COMPANY-2024-187857

PATIENT
  Age: 75 Year
  Sex: Female
  Weight: 65.5 kg

DRUGS (23)
  1. POMALYST [Suspect]
     Active Substance: POMALIDOMIDE
     Indication: Plasma cell myeloma
     Route: 048
     Dates: start: 20241016
  2. ALBUTEROL SULFATE [Concomitant]
     Active Substance: ALBUTEROL SULFATE
     Dosage: INH
  3. HYPROMELLOSE, UNSPECIFIED [Concomitant]
     Active Substance: HYPROMELLOSE, UNSPECIFIED
  4. ASPIRIN [Concomitant]
     Active Substance: ASPIRIN
  5. ATORVASTATIN [Concomitant]
     Active Substance: ATORVASTATIN
  6. DIPHENHYDRAMINE [Concomitant]
     Active Substance: DIPHENHYDRAMINE
     Dosage: X/S
  7. BENAZEPRIL [Concomitant]
     Active Substance: BENAZEPRIL HYDROCHLORIDE
  8. CALCIUM\VITAMIN D [Concomitant]
     Active Substance: CALCIUM\VITAMIN D
  9. CALCIUM [Concomitant]
     Active Substance: CALCIUM
  10. COLACE [Concomitant]
     Active Substance: DOCUSATE SODIUM
  11. DEXAMETHASONE [Concomitant]
     Active Substance: DEXAMETHASONE
  12. DICLOFENAC [Concomitant]
     Active Substance: DICLOFENAC
  13. DULCOLAX (BISACODYL) [Concomitant]
     Active Substance: BISACODYL
  14. GABAPENTIN [Concomitant]
     Active Substance: GABAPENTIN
  15. HYDROXYZINE HYDROCHLORIDE [Concomitant]
     Active Substance: HYDROXYZINE HYDROCHLORIDE
  16. MIRALAX [Concomitant]
     Active Substance: POLYETHYLENE GLYCOL 3350
  17. NALOXONE [Concomitant]
     Active Substance: NALOXONE
  18. OMEPRAZOLE [Concomitant]
     Active Substance: OMEPRAZOLE
  19. OXYCODONE [Concomitant]
     Active Substance: OXYCODONE
  20. TRAZODONE [Concomitant]
     Active Substance: TRAZODONE HYDROCHLORIDE
  21. TYLENOL [Concomitant]
     Active Substance: ACETAMINOPHEN
  22. VITAMIN D3 [Concomitant]
     Active Substance: CHOLECALCIFEROL
  23. WELLBUTRIN XL [Concomitant]
     Active Substance: BUPROPION HYDROCHLORIDE

REACTIONS (2)
  - Rash [Unknown]
  - Off label use [Unknown]

NARRATIVE: CASE EVENT DATE: 20241114
